FAERS Safety Report 22356389 (Version 1)
Quarter: 2023Q2

REPORT INFORMATION
  Report Type: Spontaneous
  Country: ES (occurrence: ES)
  Receive Date: 20230523
  Receipt Date: 20230523
  Transmission Date: 20230722
  Serious: Yes (Other)
  Sender: FDA-Public Use
  Company Number: None

PATIENT
  Age: 72 Year
  Sex: Female

DRUGS (1)
  1. ATROPINE [Suspect]
     Active Substance: ATROPINE
     Indication: Product used for unknown indication
     Route: 065
     Dates: start: 20190530

REACTIONS (2)
  - Hallucination [Recovered/Resolved]
  - Disorientation [Recovered/Resolved]

NARRATIVE: CASE EVENT DATE: 20190530
